FAERS Safety Report 5963800-2 (Version None)
Quarter: 2008Q4

REPORT INFORMATION
  Report Type: 
  Country: None (occurrence: None)
  Receive Date: 20081121
  Receipt Date: 20081121
  Transmission Date: 20090506
  Serious: No
  Sender: FDA-Public Use
  Company Number: None

PATIENT
  Age: 41 Year
  Sex: Female
  Weight: 151 kg

DRUGS (15)
  1. WARFARIN SODIUM [Suspect]
     Indication: DEEP VEIN THROMBOSIS
     Dosage: 5MG PO QD
     Route: 048
     Dates: start: 20080723, end: 20080809
  2. WARFARIN SODIUM [Suspect]
     Indication: PROPHYLAXIS
     Dosage: 5MG PO QD
     Route: 048
     Dates: start: 20080723, end: 20080809
  3. ADVAIR HFA [Concomitant]
  4. COLACE [Concomitant]
  5. HYCORT CR [Concomitant]
  6. KETOCONAZOLE CR [Concomitant]
  7. LIDOCAINE CR [Concomitant]
  8. LORATADINE [Concomitant]
  9. SINGULAIR [Concomitant]
  10. ZOFRAN [Concomitant]
  11. SENNA [Concomitant]
  12. DULCOLAX [Concomitant]
  13. ALBUTEROL [Concomitant]
  14. MORPHINE [Concomitant]
  15. CRITIC AIDE CR [Concomitant]

REACTIONS (3)
  - CONDITION AGGRAVATED [None]
  - INTERNATIONAL NORMALISED RATIO INCREASED [None]
  - PANNICULITIS [None]
